FAERS Safety Report 7097426-7 (Version None)
Quarter: 2010Q4

REPORT INFORMATION
  Report Type: 
  Country: None (occurrence: None)
  Receive Date: 20101111
  Receipt Date: 20101109
  Transmission Date: 20110411
  Serious: Yes (Other)
  Sender: FDA-Public Use
  Company Number: JP-PFIZER INC-2010140900

PATIENT
  Age: 39 Year
  Sex: Female

DRUGS (3)
  1. CHAMPIX [Suspect]
     Indication: NICOTINE DEPENDENCE
     Dosage: 0.5 MG/DAY
     Route: 048
  2. CHAMPIX [Suspect]
     Dosage: 1 MG, 1X/DAY
  3. NOVOLIN 70/30 [Concomitant]
     Dosage: UNK IU, UNK

REACTIONS (4)
  - ABDOMINAL DISTENSION [None]
  - BLOOD GLUCOSE INCREASED [None]
  - CONSTIPATION [None]
  - FEELING ABNORMAL [None]
